FAERS Safety Report 19809005 (Version 2)
Quarter: 2021Q3

REPORT INFORMATION
  Report Type: Spontaneous
  Country: FR (occurrence: FR)
  Receive Date: 20210908
  Receipt Date: 20210928
  Transmission Date: 20211014
  Serious: Yes (Disabling, Other)
  Sender: FDA-Public Use
  Company Number: FR-GILEAD-2021-0547416

PATIENT
  Age: 35 Year
  Sex: Female
  Weight: 39 kg

DRUGS (7)
  1. IMUREL [AZATHIOPRINE SODIUM] [Concomitant]
     Active Substance: AZATHIOPRINE SODIUM
     Indication: DEAFNESS
     Dosage: UNK
     Dates: start: 20210211
  2. SOLUPRED [METHYLPREDNISOLONE SODIUM SUCCINATE] [Concomitant]
     Active Substance: METHYLPREDNISOLONE SODIUM SUCCINATE
     Indication: DEAFNESS
     Dosage: UNK
     Dates: start: 201901
  3. SOLUPRED [METHYLPREDNISOLONE SODIUM SUCCINATE] [Concomitant]
     Active Substance: METHYLPREDNISOLONE SODIUM SUCCINATE
     Indication: NEUROSARCOIDOSIS
     Dosage: 5 MG
     Route: 048
     Dates: start: 2019
  4. VITAMIN B12 [Concomitant]
     Active Substance: CYANOCOBALAMIN
     Dosage: UNK
     Dates: start: 202102
  5. SPECIAFOLDINE [Concomitant]
     Active Substance: FOLIC ACID
     Dosage: UNK
     Dates: start: 202102
  6. GENVOYA [Suspect]
     Active Substance: COBICISTAT\ELVITEGRAVIR\EMTRICITABINE\TENOFOVIR ALAFENAMIDE FUMARATE
     Indication: EXPOSURE TO BODY FLUID
     Dosage: 1 TABLET
     Route: 048
     Dates: start: 202107, end: 202107
  7. IMUREL [AZATHIOPRINE SODIUM] [Concomitant]
     Active Substance: AZATHIOPRINE SODIUM
     Indication: NEUROSARCOIDOSIS
     Dosage: 100 MG
     Route: 048
     Dates: start: 202101

REACTIONS (3)
  - Off label use [Recovered/Resolved]
  - Sudden hearing loss [Not Recovered/Not Resolved]
  - Deafness neurosensory [Not Recovered/Not Resolved]

NARRATIVE: CASE EVENT DATE: 202107
